FAERS Safety Report 5458080-0 (Version None)
Quarter: 2007Q3

REPORT INFORMATION
  Report Type: 
  Country: None (occurrence: None)
  Receive Date: 20070919
  Receipt Date: 20070917
  Transmission Date: 20080115
  Serious: Yes (Death, Disabling, Other)
  Sender: FDA-Public Use
  Company Number: PHRM2007FR02202

PATIENT
  Age: 60 Year
  Sex: Female

DRUGS (13)
  1. CLASTOBAN [Suspect]
     Indication: BREAST CANCER METASTATIC
     Route: 048
     Dates: start: 19990106, end: 19990630
  2. ZOMETA [Suspect]
     Indication: METASTASES TO BONE
     Route: 042
     Dates: start: 20020907
  3. TAXOTERE [Concomitant]
     Indication: BREAST CANCER METASTATIC
     Dosage: 8 COURSES
     Dates: start: 20010509, end: 20011012
  4. TAXOTERE [Concomitant]
     Dosage: 4 COURSES
     Dates: start: 20030325, end: 20030619
  5. XELODA [Concomitant]
     Indication: BREAST CANCER METASTATIC
     Dates: start: 20010509
  6. FORTIMEL [Concomitant]
     Dates: start: 20010712
  7. FEMARA [Concomitant]
     Route: 048
     Dates: start: 20020307, end: 20020821
  8. TAXOL [Concomitant]
     Indication: BREAST CANCER METASTATIC
     Dates: start: 20020901, end: 20030115
  9. RADIOTHERAPY [Concomitant]
     Indication: BREAST CANCER METASTATIC
     Dates: start: 20020901
  10. NAVELBINE [Concomitant]
     Indication: BREAST CANCER METASTATIC
     Dosage: 2 COURSES
     Dates: start: 20030128, end: 20030225
  11. EPIRUBICIN [Concomitant]
     Indication: BREAST CANCER METASTATIC
     Dates: start: 20030128, end: 20030225
  12. AREDIA [Suspect]
     Indication: METASTASES TO BONE
     Route: 042
     Dates: start: 19991027, end: 20000107
  13. AREDIA [Suspect]
     Route: 042
     Dates: start: 20020307, end: 20020821

REACTIONS (18)
  - BONE DENSITY DECREASED [None]
  - BONE DISORDER [None]
  - DEATH [None]
  - DYSPHAGIA [None]
  - FACIAL NEURALGIA [None]
  - INFECTION [None]
  - INFLAMMATION [None]
  - MASTICATION DISORDER [None]
  - METASTASES TO LIVER [None]
  - METASTASES TO OVARY [None]
  - MOUTH HAEMORRHAGE [None]
  - MUCOSAL INFLAMMATION [None]
  - MUSCULOSKELETAL STIFFNESS [None]
  - OSTEONECROSIS [None]
  - OSTEOSCLEROSIS [None]
  - PARAESTHESIA [None]
  - RADIATION INJURY [None]
  - STOMATITIS [None]
